FAERS Safety Report 24918300 (Version 3)
Quarter: 2025Q4

REPORT INFORMATION
  Report Type: Spontaneous
  Country: US (occurrence: US)
  Receive Date: 20250203
  Receipt Date: 20251016
  Transmission Date: 20260118
  Serious: No
  Sender: PFIZER
  Company Number: US-PFIZER INC-202400298008

PATIENT
  Age: 67 Year
  Sex: Female
  Weight: 72.57 kg

DRUGS (6)
  1. IBRANCE [Suspect]
     Active Substance: PALBOCICLIB
     Indication: Hormone receptor positive breast cancer
     Dosage: 125 MG, ONCE DAILY 1-21 DAYS, 7 DAYS OFF
     Dates: start: 202402
  2. IBRANCE [Suspect]
     Active Substance: PALBOCICLIB
     Indication: Breast cancer metastatic
     Dosage: 125 MG, 1X/DAY
  3. IBRANCE [Suspect]
     Active Substance: PALBOCICLIB
     Dosage: 125 MG, CYCLIC (TAKE 1 TABLET EVERY DAY FOR 3 WEEKS ON 1 WEEK OFF)
     Route: 048
  4. IBRANCE [Suspect]
     Active Substance: PALBOCICLIB
     Dosage: 125 MG
  5. DILTIAZEM [Concomitant]
     Active Substance: DILTIAZEM
     Indication: Blood pressure measurement
     Dosage: UNK
  6. LOSARTAN POTASSIUM [Concomitant]
     Active Substance: LOSARTAN POTASSIUM
     Dosage: 25 MG, 1X/DAY

REACTIONS (2)
  - Alopecia [Unknown]
  - Cognitive disorder [Not Recovered/Not Resolved]
